FAERS Safety Report 11843504 (Version 2)
Quarter: 2016Q3

REPORT INFORMATION
  Report Type: Spontaneous
  Country: US (occurrence: US)
  Receive Date: 20151217
  Receipt Date: 20160720
  Transmission Date: 20161109
  Serious: No
  Sender: FDA-Public Use
  Company Number: US-BRISTOL-MYERS SQUIBB COMPANY-BMS-2015-085472

PATIENT
  Age: 16 Year
  Sex: Female

DRUGS (6)
  1. SERTRALINE [Suspect]
     Active Substance: SERTRALINE HYDROCHLORIDE
     Indication: OBSESSIVE-COMPULSIVE DISORDER
  2. ABILIFY [Suspect]
     Active Substance: ARIPIPRAZOLE
     Indication: OBSESSIVE-COMPULSIVE DISORDER
     Dosage: 7.5 MG, UNK
     Route: 065
  3. ABILIFY [Suspect]
     Active Substance: ARIPIPRAZOLE
     Indication: ANXIETY
  4. SERTRALINE [Suspect]
     Active Substance: SERTRALINE HYDROCHLORIDE
     Indication: TRICHOTILLOMANIA
  5. ABILIFY [Suspect]
     Active Substance: ARIPIPRAZOLE
     Indication: TRICHOTILLOMANIA
  6. SERTRALINE [Suspect]
     Active Substance: SERTRALINE HYDROCHLORIDE
     Indication: ANXIETY
     Dosage: 200 MG, QD
     Route: 065

REACTIONS (2)
  - Off label use [Unknown]
  - Weight increased [Unknown]
